FAERS Safety Report 10274109 (Version 1)
Quarter: 2014Q3

REPORT INFORMATION
  Report Type: Spontaneous
  Country: US (occurrence: US)
  Receive Date: 20140702
  Receipt Date: 20140702
  Transmission Date: 20150326
  Serious: Yes (Other)
  Sender: FDA-Public Use
  Company Number: US-TEVA-490508USA

PATIENT
  Sex: Female

DRUGS (3)
  1. NAPROXEN. [Suspect]
     Active Substance: NAPROXEN
  2. TRAMADOL [Suspect]
     Active Substance: TRAMADOL
  3. ONDANSETRON [Suspect]
     Active Substance: ONDANSETRON

REACTIONS (1)
  - Coeliac disease [Unknown]
